FAERS Safety Report 23879568 (Version 1)
Quarter: 2024Q2

REPORT INFORMATION
  Report Type: Spontaneous
  Country: CA (occurrence: CA)
  Receive Date: 20240521
  Receipt Date: 20240521
  Transmission Date: 20240715
  Serious: Yes (Other)
  Sender: FDA-Public Use
  Company Number: CA-OTSUKA-2024_013914

PATIENT
  Sex: Male

DRUGS (2)
  1. ARIPIPRAZOLE [Suspect]
     Active Substance: ARIPIPRAZOLE
     Indication: Bipolar disorder
     Dosage: UNK
     Route: 048
  2. QUETIAPINE [Suspect]
     Active Substance: QUETIAPINE
     Indication: Bipolar disorder
     Dosage: 100 MG, QD
     Route: 048

REACTIONS (6)
  - Drug dependence [Recovered/Resolved]
  - Apathy [Recovered/Resolved]
  - Loss of libido [Recovered/Resolved]
  - Depressed mood [Recovered/Resolved]
  - Sedation [Recovered/Resolved]
  - Off label use [Recovered/Resolved]
